FAERS Safety Report 10399872 (Version 1)
Quarter: 2014Q3

REPORT INFORMATION
  Report Type: Spontaneous
  Country: US (occurrence: US)
  Receive Date: 20140821
  Receipt Date: 20140821
  Transmission Date: 20150326
  Serious: Yes (Other)
  Sender: FDA-Public Use
  Company Number: US-GLAXOSMITHKLINE-A1084999A

PATIENT
  Age: 61 Year
  Sex: Male

DRUGS (14)
  1. NIACIN. [Concomitant]
     Active Substance: NIACIN
  2. BUPROPION [Concomitant]
     Active Substance: BUPROPION
  3. SPIRONOLACTONE. [Concomitant]
     Active Substance: SPIRONOLACTONE
  4. MINOCYCLINE [Concomitant]
     Active Substance: MINOCYCLINE\MINOCYCLINE HYDROCHLORIDE
  5. SORIATANE [Suspect]
     Active Substance: ACITRETIN
     Indication: SQUAMOUS CELL CARCINOMA OF SKIN
     Dosage: 25MG PER DAY
     Route: 048
     Dates: start: 201301
  6. ATORVASTATIN [Concomitant]
     Active Substance: ATORVASTATIN
  7. AMLODIPINE [Concomitant]
     Active Substance: AMLODIPINE BESYLATE
  8. GABAPENTIN. [Concomitant]
     Active Substance: GABAPENTIN
  9. LEVOTHYROXIN [Concomitant]
     Active Substance: LEVOTHYROXINE
  10. LANSOPRAZOLE. [Concomitant]
     Active Substance: LANSOPRAZOLE
  11. CARVEDILOL. [Concomitant]
     Active Substance: CARVEDILOL
  12. ZOLPIDEM TARTRATE. [Concomitant]
     Active Substance: ZOLPIDEM TARTRATE
  13. VESICARE [Concomitant]
     Active Substance: SOLIFENACIN SUCCINATE
  14. NAPROXEN. [Concomitant]
     Active Substance: NAPROXEN

REACTIONS (4)
  - Breast mass [Unknown]
  - Onychoclasis [Unknown]
  - Dry eye [Unknown]
  - Dry mouth [Unknown]
